FAERS Safety Report 19621985 (Version 2)
Quarter: 2021Q3

REPORT INFORMATION
  Report Type: Spontaneous
  Country: US (occurrence: US)
  Receive Date: 20210728
  Receipt Date: 20210804
  Transmission Date: 20211014
  Serious: No
  Sender: FDA-Public Use
  Company Number: NVSC2021US163486

PATIENT
  Sex: Female

DRUGS (1)
  1. XIIDRA [Suspect]
     Active Substance: LIFITEGRAST
     Indication: DRY EYE
     Dosage: UNK
     Route: 047
     Dates: start: 202102

REACTIONS (7)
  - Vision blurred [Unknown]
  - Visual impairment [Unknown]
  - Eye pain [Unknown]
  - Dyspepsia [Unknown]
  - Ocular discomfort [Unknown]
  - Dry eye [Unknown]
  - Photopsia [Unknown]
